FAERS Safety Report 10416130 (Version 1)
Quarter: 2014Q2

REPORT INFORMATION
  Report Type: Spontaneous
  Country: US (occurrence: None)
  Receive Date: 20140604
  Receipt Date: 20140604
  Transmission Date: 20141212
  Serious: Yes (Hospitalization)
  Sender: FDA-Public Use
  Company Number: 163-POMAL-14040502

PATIENT
  Age: 56 Year
  Sex: Male
  Weight: 96.16 kg

DRUGS (11)
  1. POMALYST (POMALIDOMIDE) (4 MILLIGRAM, CAPSULES) [Suspect]
     Indication: PLASMA CELL MYELOMA
     Dosage: 4 MG, 21 IN 21 D
     Route: 048
     Dates: start: 201402
  2. AMLODIPINE [Concomitant]
  3. ALBUTEROL (SALBUTAMOL) [Concomitant]
  4. AZITHROMYCIN [Concomitant]
  5. DEXAMETHASONE [Concomitant]
  6. GABAPENTIN [Concomitant]
  7. LEVOFLOXACIN [Concomitant]
  8. OXYCODONE ER (OXYCODONE HYDROCHLORIDE) [Concomitant]
  9. OXYCODONE/APAP [Concomitant]
  10. TOPIRAMATE [Concomitant]
  11. ASPIRIN (ACETYLSALICYLIC ACID) [Concomitant]

REACTIONS (1)
  - Pneumonia [None]
